FAERS Safety Report 8545196-5 (Version None)
Quarter: 2012Q3

REPORT INFORMATION
  Report Type: 
  Country: None (occurrence: None)
  Receive Date: 20120719
  Receipt Date: 20120719
  Transmission Date: 20120928
  Serious: No
  Sender: FDA-Public Use
  Company Number: None

PATIENT
  Age: 68 Year
  Sex: Male
  Weight: 72.1 kg

DRUGS (1)
  1. CIPRO IN DEXTROSE 5% [Suspect]
     Dates: start: 20120224, end: 20120224

REACTIONS (3)
  - INFUSION SITE RASH [None]
  - INFUSION SITE PHLEBITIS [None]
  - INFUSION SITE ERYTHEMA [None]
